FAERS Safety Report 4448813-4 (Version None)
Quarter: 2004Q3

REPORT INFORMATION
  Report Type: 
  Country: None (occurrence: None)
  Receive Date: 20040909
  Receipt Date: 20040901
  Transmission Date: 20050211
  Serious: Yes (Other)
  Sender: FDA-Public Use
  Company Number: 2004-08-0536

PATIENT
  Age: 51 Year
  Sex: Male
  Weight: 102.9665 kg

DRUGS (10)
  1. PEG-INTRON [Suspect]
     Indication: HEPATITIS C
     Dosage: 150 MCG QW SUBCUTANEOUS
     Route: 058
     Dates: start: 20040224, end: 20040715
  2. REBETOL [Suspect]
     Indication: HEPATITIS C
     Dosage: 800 MG QD ORAL
     Route: 048
     Dates: start: 20040224, end: 20040715
  3. DIOVAN HCT [Concomitant]
  4. NEXIUM [Concomitant]
  5. SINGULAIR [Concomitant]
  6. VIAGRA [Concomitant]
  7. PROZAC [Concomitant]
  8. AMBIEN [Concomitant]
  9. ALBUTEROL [Concomitant]
  10. FLOVENT [Concomitant]

REACTIONS (11)
  - CHROMATOPSIA [None]
  - EYE PAIN [None]
  - EYE PRURITUS [None]
  - HEADACHE [None]
  - ISCHAEMIA [None]
  - OCULAR DISCOMFORT [None]
  - OPTIC ISCHAEMIC NEUROPATHY [None]
  - OPTIC NEURITIS [None]
  - VISION BLURRED [None]
  - VISUAL ACUITY REDUCED [None]
  - VITREOUS FLOATERS [None]
